FAERS Safety Report 4636637-4 (Version None)
Quarter: 2005Q2

REPORT INFORMATION
  Report Type: 
  Country: None (occurrence: None)
  Receive Date: 20050414
  Receipt Date: 20050405
  Transmission Date: 20051028
  Serious: No
  Sender: FDA-Public Use
  Company Number: 2005AP02057

PATIENT
  Age: 27 Year
  Sex: Female

DRUGS (1)
  1. OMEPRAZOLE [Suspect]
     Indication: GASTRITIS
     Dosage: 20 MG DAILY PO
     Route: 048
     Dates: start: 20000926

REACTIONS (3)
  - DYSPNOEA [None]
  - RASH [None]
  - URTICARIA [None]
